FAERS Safety Report 5376493-2 (Version None)
Quarter: 2007Q3

REPORT INFORMATION
  Report Type: 
  Country: None (occurrence: None)
  Receive Date: 20070702
  Receipt Date: 20070620
  Transmission Date: 20080115
  Serious: Yes (Other)
  Sender: FDA-Public Use
  Company Number: BR-PFIZER INC-2007053633

PATIENT
  Sex: Female
  Weight: 75 kg

DRUGS (5)
  1. XALATAN [Suspect]
     Indication: GLAUCOMA
     Route: 047
  2. ATENOLOL [Concomitant]
     Route: 048
  3. AMLODIPINE BESYLATE [Concomitant]
     Route: 048
  4. ALL OTHER THERAPEUTIC PRODUCTS [Concomitant]
     Route: 048
  5. OMEPRAZOLE [Concomitant]
     Indication: GASTRITIS
     Route: 048

REACTIONS (10)
  - COUGH [None]
  - DIZZINESS [None]
  - DYSPNOEA [None]
  - EYE DISORDER [None]
  - EYE IRRITATION [None]
  - EYE PAIN [None]
  - FEELING ABNORMAL [None]
  - HEADACHE [None]
  - VISUAL ACUITY REDUCED [None]
  - VISUAL DISTURBANCE [None]
